FAERS Safety Report 7068255-5 (Version None)
Quarter: 2010Q4

REPORT INFORMATION
  Report Type: 
  Country: None (occurrence: None)
  Receive Date: 20101028
  Receipt Date: 20101014
  Transmission Date: 20110411
  Serious: No
  Sender: FDA-Public Use
  Company Number: US-MYLANLABS-2010S1015906

PATIENT
  Age: 72 Year
  Sex: Male

DRUGS (1)
  1. TAMSULOSIN HCL [Suspect]
     Indication: PROSTATOMEGALY
     Dates: start: 20100612, end: 20100618

REACTIONS (5)
  - DIZZINESS [None]
  - DYSSTASIA [None]
  - NAUSEA [None]
  - PROSTATOMEGALY [None]
  - URINARY RETENTION [None]
